FAERS Safety Report 8595612 (Version 3)
Quarter: 2013Q2

REPORT INFORMATION
  Report Type: Spontaneous
  Country: US (occurrence: US)
  Receive Date: 20120604
  Receipt Date: 20130530
  Transmission Date: 20140414
  Serious: No
  Sender: FDA-Public Use
  Company Number: US-NOVEN-12US004108

PATIENT
  Sex: Female
  Weight: 51.7 kg

DRUGS (9)
  1. DAYTRANA [Suspect]
     Indication: ATTENTION DEFICIT/HYPERACTIVITY DISORDER
     Dosage: 30 MG, QD
     Route: 062
  2. XANAX [Concomitant]
     Indication: ANXIETY
     Dosage: UNK
     Route: 048
  3. VYVANSE [Concomitant]
     Indication: ATTENTION DEFICIT/HYPERACTIVITY DISORDER
     Dosage: UNK
     Route: 048
  4. BYETTA [Concomitant]
     Indication: DIABETES MELLITUS
     Route: 048
  5. ABILIFY [Concomitant]
     Indication: ANXIETY
     Dosage: UNK
     Route: 048
  6. LEXAPRO [Concomitant]
     Indication: ANXIETY
     Route: 048
  7. CYMBALTA [Concomitant]
     Indication: ANXIETY
     Dosage: UNK
     Route: 048
  8. TOPAMAX [Concomitant]
     Indication: ANXIETY
     Dosage: UNK
     Route: 048
  9. LORCET                             /00607101/ [Concomitant]
     Indication: PAIN
     Dosage: UNK
     Route: 048

REACTIONS (2)
  - Application site discolouration [Not Recovered/Not Resolved]
  - Off label use [Recovered/Resolved]
